FAERS Safety Report 8340841-1 (Version None)
Quarter: 2012Q2

REPORT INFORMATION
  Report Type: 
  Country: None (occurrence: None)
  Receive Date: 20120503
  Receipt Date: 20120503
  Transmission Date: 20120825
  Serious: No
  Sender: FDA-Public Use
  Company Number: None

PATIENT
  Age: 43 Year
  Sex: Female
  Weight: 78.0187 kg

DRUGS (1)
  1. GILENYA [Suspect]
     Indication: MULTIPLE SCLEROSIS
     Dosage: GILENYA 0.5MG QD PO
     Route: 048
     Dates: start: 20120203, end: 20120427

REACTIONS (3)
  - FEELING HOT [None]
  - FLUSHING [None]
  - DISORIENTATION [None]
